FAERS Safety Report 10023733 (Version 1)
Quarter: 2014Q1

REPORT INFORMATION
  Report Type: Spontaneous
  Country: US (occurrence: None)
  Receive Date: 20140319
  Receipt Date: 20140319
  Transmission Date: 20141002
  Serious: No
  Sender: FDA-Public Use
  Company Number: None

PATIENT
  Age: 53 Year
  Sex: Female
  Weight: 114.76 kg

DRUGS (1)
  1. HUMALOG KWIKPEN [Suspect]
     Indication: DRUG THERAPY
     Dosage: SLIDING SCALE, GIVEN INTO/UNDER THE SKIN
     Dates: start: 20140228, end: 20140302

REACTIONS (4)
  - Rash [None]
  - Pruritus [None]
  - Pain [None]
  - Rash [None]
